FAERS Safety Report 13107234 (Version 3)
Quarter: 2017Q2

REPORT INFORMATION
  Report Type: Report from Study
  Country: None (occurrence: CA)
  Receive Date: 20170112
  Receipt Date: 20170407
  Transmission Date: 20170830
  Serious: Yes (Hospitalization)
  Sender: FDA-Public Use
  Company Number: CA-ABBVIE-17K-028-1833455-00

PATIENT
  Age: 70 Year
  Sex: Female

DRUGS (2)
  1. HUMIRA [Suspect]
     Active Substance: ADALIMUMAB
     Indication: PSORIASIS
     Route: 058
     Dates: start: 20080605, end: 20161128
  2. HUMIRA [Suspect]
     Active Substance: ADALIMUMAB
     Route: 058
     Dates: start: 20170123

REACTIONS (8)
  - Respiratory disorder [Recovered/Resolved]
  - Oedema peripheral [Unknown]
  - Pulmonary oedema [Recovered/Resolved]
  - Psoriasis [Not Recovered/Not Resolved]
  - Lung infection [Recovered/Resolved]
  - Respiratory tract infection [Unknown]
  - Peripheral swelling [Not Recovered/Not Resolved]
  - Dyspnoea [Recovered/Resolved]

NARRATIVE: CASE EVENT DATE: 201701
